FAERS Safety Report 15085306 (Version 10)
Quarter: 2018Q4

REPORT INFORMATION
  Report Type: Spontaneous
  Country: US (occurrence: US)
  Receive Date: 20180628
  Receipt Date: 20181203
  Transmission Date: 20190204
  Serious: Yes (Hospitalization)
  Sender: FDA-Public Use
  Company Number: US-ACTELION-A-US2018-173883

PATIENT
  Age: 32 Year
  Sex: Male
  Weight: 76.19 kg

DRUGS (4)
  1. VELETRI [Suspect]
     Active Substance: EPOPROSTENOL
     Dosage: 22 NG/KG, PER MIN
     Route: 042
  2. VELETRI [Suspect]
     Active Substance: EPOPROSTENOL
     Indication: PULMONARY ARTERIAL HYPERTENSION
     Dosage: 60 NG/KG, PER MIN
     Route: 042
  3. XARELTO [Concomitant]
     Active Substance: RIVAROXABAN
  4. VELETRI [Suspect]
     Active Substance: EPOPROSTENOL
     Dosage: 16 NG/KG, PER MIN
     Route: 042

REACTIONS (17)
  - Erythema [Unknown]
  - Oedema peripheral [Unknown]
  - Catheter site pruritus [Unknown]
  - Nausea [Unknown]
  - Device occlusion [Unknown]
  - Pain in jaw [Unknown]
  - Feeling hot [Unknown]
  - Catheter management [Recovering/Resolving]
  - Device issue [Recovering/Resolving]
  - Therapy change [Unknown]
  - Device related infection [Recovering/Resolving]
  - Skin irritation [Unknown]
  - Hot flush [Unknown]
  - Staphylococcus test positive [Recovering/Resolving]
  - Device malfunction [Recovering/Resolving]
  - Dyspnoea exertional [Unknown]
  - Dyspnoea [Recovering/Resolving]

NARRATIVE: CASE EVENT DATE: 201808
